FAERS Safety Report 16446569 (Version 1)
Quarter: 2019Q2

REPORT INFORMATION
  Report Type: Spontaneous
  Country: NO (occurrence: NO)
  Receive Date: 20190618
  Receipt Date: 20190618
  Transmission Date: 20190711
  Serious: Yes (Hospitalization)
  Sender: FDA-Public Use
  Company Number: NO-PFIZER INC-2019254982

PATIENT
  Age: 52 Year
  Sex: Female

DRUGS (3)
  1. IMOVANE [Concomitant]
     Active Substance: ZOPICLONE
     Indication: INSOMNIA
     Dosage: UNK UNK, AS NEEDED
     Route: 048
     Dates: start: 20170101
  2. FASLODEX [Concomitant]
     Active Substance: FULVESTRANT
     Indication: BREAST CANCER
     Dosage: 250 MG/SYRINGE. ACCORDING TO THE SUMMARY OF PRODUCT CHARACTERISTICS (SPC)
     Route: 030
     Dates: start: 20170201
  3. IBRANCE [Suspect]
     Active Substance: PALBOCICLIB
     Indication: BREAST CANCER
     Dosage: ACCORDING TO THE SUMMARY OF PRODUCT CHARACTERISTICS (SPC)
     Route: 048
     Dates: start: 20170201

REACTIONS (1)
  - Hypopituitarism [Recovering/Resolving]

NARRATIVE: CASE EVENT DATE: 20190311
